FAERS Safety Report 11793196 (Version 1)
Quarter: 2015Q4

REPORT INFORMATION
  Report Type: Spontaneous
  Country: US (occurrence: None)
  Receive Date: 20151201
  Receipt Date: 20151201
  Transmission Date: 20160305
  Serious: Yes (Other)
  Sender: FDA-Public Use
  Company Number: None

PATIENT
  Age: 55 Year
  Sex: Male
  Weight: 92.53 kg

DRUGS (2)
  1. DAKLINZA [Suspect]
     Active Substance: DACLATASVIR
     Indication: HEPATITIS C
     Route: 048
     Dates: start: 20151015, end: 20151112
  2. SOFUSBUVIR 400MG GILEAD [Suspect]
     Active Substance: SOFOSBUVIR
     Indication: HEPATITIS C
     Route: 048

REACTIONS (7)
  - Headache [None]
  - Heart rate increased [None]
  - Fatigue [None]
  - Anxiety [None]
  - Terminal insomnia [None]
  - Tinnitus [None]
  - Therapeutic response decreased [None]

NARRATIVE: CASE EVENT DATE: 20151112
